FAERS Safety Report 21356925 (Version 1)
Quarter: 2022Q3

REPORT INFORMATION
  Report Type: Spontaneous
  Country: NL (occurrence: NL)
  Receive Date: 20220921
  Receipt Date: 20220921
  Transmission Date: 20221026
  Serious: Yes (Other)
  Sender: FDA-Public Use
  Company Number: None

PATIENT
  Sex: Female
  Weight: 73 kg

DRUGS (2)
  1. CLINDAMYCIN HYDROCHLORIDE [Suspect]
     Active Substance: CLINDAMYCIN HYDROCHLORIDE
     Indication: Bacterial infection
     Dosage: FREQUENCY: EVERY 6 HOURS; 4X/DAY; ONE CAPSULE DAILY FOR 5 CONSECUTIVE DAYS
     Dates: start: 20220829
  2. DESLORATADINE [Concomitant]
     Active Substance: DESLORATADINE

REACTIONS (2)
  - Metal poisoning [Not Recovered/Not Resolved]
  - Diarrhoea [Not Recovered/Not Resolved]
